FAERS Safety Report 17657291 (Version 3)
Quarter: 2020Q2

REPORT INFORMATION
  Report Type: Report from Study
  Country: US (occurrence: US)
  Receive Date: 20200410
  Receipt Date: 20200622
  Transmission Date: 20200713
  Serious: Yes (Hospitalization)
  Sender: FDA-Public Use
  Company Number: US-PRINSTON PHARMACEUTICAL INC.-2020PRN00112

PATIENT
  Age: 17 Year
  Sex: Female

DRUGS (9)
  1. TACROLIMUS. [Concomitant]
     Active Substance: TACROLIMUS
  2. AMLODIPINE [Concomitant]
     Active Substance: AMLODIPINE BESYLATE
  3. NORETHINDRONE. [Concomitant]
     Active Substance: NORETHINDRONE
  4. ATORVASTATIN [Concomitant]
     Active Substance: ATORVASTATIN
     Dosage: 20 MG, 1X/DAY
     Dates: end: 20200318
  5. FUROSEMIDE. [Concomitant]
     Active Substance: FUROSEMIDE
     Dosage: 40 MG, 1X/DAY
     Route: 048
     Dates: start: 20181102, end: 20200225
  6. VITAMIN D [Concomitant]
     Active Substance: VITAMIN D NOS
  7. IRBESARTAN. [Suspect]
     Active Substance: IRBESARTAN
     Dosage: 300 MG, 1X/DAY
     Route: 048
     Dates: start: 20200226
  8. IRBESARTAN. [Suspect]
     Active Substance: IRBESARTAN
     Indication: FOCAL SEGMENTAL GLOMERULOSCLEROSIS
     Dosage: 150 MG, 1X/DAY
     Route: 048
     Dates: start: 20200212, end: 20200225
  9. ATORVASTATIN [Concomitant]
     Active Substance: ATORVASTATIN
     Dosage: 40 UNK
     Dates: start: 20200318

REACTIONS (3)
  - Hypoalbuminaemia [Recovered/Resolved]
  - Oedema [Recovered/Resolved]
  - Off label use [Not Recovered/Not Resolved]

NARRATIVE: CASE EVENT DATE: 20200212
